FAERS Safety Report 9424769 (Version 3)
Quarter: 2013Q4

REPORT INFORMATION
  Report Type: Report from Study
  Country: FR (occurrence: FR)
  Receive Date: 20130729
  Receipt Date: 20131002
  Transmission Date: 20140711
  Serious: Yes (Hospitalization)
  Sender: FDA-Public Use
  Company Number: FR-TEVA-420773ISR

PATIENT
  Age: 69 Year
  Sex: Male

DRUGS (10)
  1. OMACETAXINE [Suspect]
     Indication: CHRONIC MYELOID LEUKAEMIA
     Route: 058
     Dates: start: 201206
  2. OMACETAXINE [Suspect]
     Route: 058
     Dates: start: 20130724, end: 20130726
  3. INIPOMP 20MG [Concomitant]
     Route: 048
     Dates: start: 2001
  4. KARDEGIC [Concomitant]
     Route: 048
     Dates: start: 2001
  5. PLAVIX [Concomitant]
     Route: 048
     Dates: start: 2012
  6. AMLOR [Concomitant]
     Route: 048
     Dates: start: 2001
  7. BISOPROLOL [Concomitant]
     Route: 048
     Dates: start: 2012
  8. EZETROL [Concomitant]
     Route: 048
     Dates: start: 2011
  9. COVERSYL [Concomitant]
     Route: 048
     Dates: start: 2011
  10. LYRICA [Concomitant]
     Dates: start: 2011

REACTIONS (1)
  - Renal failure acute [Not Recovered/Not Resolved]
